FAERS Safety Report 8124631-0 (Version None)
Quarter: 2012Q1

REPORT INFORMATION
  Report Type: 
  Country: None (occurrence: None)
  Receive Date: 20120209
  Receipt Date: 20120209
  Transmission Date: 20120608
  Serious: No
  Sender: FDA-Public Use
  Company Number: None

PATIENT
  Age: 25 Year
  Sex: Male
  Weight: 156.48 kg

DRUGS (1)
  1. OXYCONTIN [Suspect]

REACTIONS (11)
  - OROPHARYNGEAL PAIN [None]
  - PAIN [None]
  - PRODUCT FORMULATION ISSUE [None]
  - PRODUCT PHYSICAL ISSUE [None]
  - GASTRIC DISORDER [None]
  - DIZZINESS [None]
  - CONSTIPATION [None]
  - OESOPHAGEAL IRRITATION [None]
  - FOREIGN BODY [None]
  - NAUSEA [None]
  - THROAT IRRITATION [None]
